FAERS Safety Report 12708983 (Version 1)
Quarter: 2016Q3

REPORT INFORMATION
  Report Type: Spontaneous
  Country: US (occurrence: US)
  Receive Date: 20160901
  Receipt Date: 20160901
  Transmission Date: 20161109
  Serious: No
  Sender: FDA-Public Use
  Company Number: US-JAZZ-2016-US-008521

PATIENT
  Sex: Female

DRUGS (26)
  1. XYREM [Suspect]
     Active Substance: SODIUM OXYBATE
     Indication: NARCOLEPSY
     Dosage: 2.25 G, BID
     Route: 048
     Dates: start: 200808, end: 200810
  2. BUTORPHANOL [Concomitant]
     Active Substance: BUTORPHANOL
  3. XYREM [Suspect]
     Active Substance: SODIUM OXYBATE
     Dosage: 4.5 G, BID
     Route: 048
     Dates: start: 201404, end: 201601
  4. LASIX [Concomitant]
     Active Substance: FUROSEMIDE
  5. PROVIGIL [Concomitant]
     Active Substance: MODAFINIL
  6. TOPROL XL [Concomitant]
     Active Substance: METOPROLOL SUCCINATE
  7. PROCARDIA [Concomitant]
     Active Substance: NIFEDIPINE
  8. AMLODIPINE BESYLATE. [Concomitant]
     Active Substance: AMLODIPINE BESYLATE
  9. PRILOSEC [Concomitant]
     Active Substance: OMEPRAZOLE MAGNESIUM
  10. DILTIAZEM. [Concomitant]
     Active Substance: DILTIAZEM
  11. ROXICODONE [Concomitant]
     Active Substance: OXYCODONE HYDROCHLORIDE
  12. ATENOLOL. [Concomitant]
     Active Substance: ATENOLOL
  13. DEXTROAMPHETAMINE. [Concomitant]
     Active Substance: DEXTROAMPHETAMINE
  14. ULORIC [Concomitant]
     Active Substance: FEBUXOSTAT
  15. COZAAR [Concomitant]
     Active Substance: LOSARTAN POTASSIUM
  16. XYREM [Suspect]
     Active Substance: SODIUM OXYBATE
     Dosage: 4.5 G, BID
     Route: 048
     Dates: start: 200906, end: 2013
  17. DEPAKOTE [Concomitant]
     Active Substance: DIVALPROEX SODIUM
  18. PROTONIX [Concomitant]
     Active Substance: PANTOPRAZOLE SODIUM
  19. FISH OIL [Concomitant]
     Active Substance: FISH OIL
  20. AMOXICILLIN. [Concomitant]
     Active Substance: AMOXICILLIN
  21. ZOCOR [Concomitant]
     Active Substance: SIMVASTATIN
  22. XYREM [Suspect]
     Active Substance: SODIUM OXYBATE
     Dosage: DOSE ADJUSTMENTS
     Route: 048
  23. CALCITRIOL. [Concomitant]
     Active Substance: CALCITRIOL
  24. KLOR-CON [Concomitant]
     Active Substance: POTASSIUM CHLORIDE
  25. DEXEDRINE [Concomitant]
     Active Substance: DEXTROAMPHETAMINE SULFATE
  26. OMEGA 3 FISH OIL [Concomitant]
     Active Substance: FISH OIL\OMEGA-3 FATTY ACIDS

REACTIONS (1)
  - Peripheral swelling [Unknown]
